FAERS Safety Report 23173475 (Version 1)
Quarter: 2023Q4

REPORT INFORMATION
  Report Type: Spontaneous
  Country: IT (occurrence: IT)
  Receive Date: 20231111
  Receipt Date: 20231111
  Transmission Date: 20240110
  Serious: Yes (Other)
  Sender: FDA-Public Use
  Company Number: None

PATIENT
  Age: 65 Year
  Sex: Female
  Weight: 70 kg

DRUGS (3)
  1. ADALIMUMAB [Suspect]
     Active Substance: ADALIMUMAB\ISOPROPYL ALCOHOL
     Indication: Psoriatic arthropathy
     Dosage: 40 MILLIGRAM
     Route: 058
     Dates: start: 2017, end: 202305
  2. METHOTREXATE [Suspect]
     Active Substance: METHOTREXATE
     Indication: Psoriatic arthropathy
     Dosage: 15 MG SUBCUTANEOUS INJECTION EVERY 15 DAYS
     Route: 058
     Dates: start: 2020
  3. Folina [Concomitant]
     Indication: Toxicity to various agents
     Dosage: UNK

REACTIONS (2)
  - Psoriatic arthropathy [Unknown]
  - Polymyalgia rheumatica [Unknown]

NARRATIVE: CASE EVENT DATE: 20220301
